FAERS Safety Report 6821287-1 (Version None)
Quarter: 2010Q3

REPORT INFORMATION
  Report Type: 
  Country: None (occurrence: None)
  Receive Date: 20100707
  Receipt Date: 20080520
  Transmission Date: 20110219
  Serious: No
  Sender: FDA-Public Use
  Company Number: US-PFIZER INC-2008043968

PATIENT
  Sex: Male
  Weight: 126.1 kg

DRUGS (9)
  1. ZOLOFT [Suspect]
     Indication: DEPRESSION
     Route: 048
     Dates: start: 20000101
  2. PROVIGIL [Concomitant]
     Indication: NARCOLEPSY
     Route: 048
     Dates: start: 20070101
  3. KLONOPIN [Concomitant]
     Dates: start: 20050101
  4. ZETIA [Concomitant]
     Dates: start: 20050101
  5. TOPROL-XL [Concomitant]
     Dates: start: 20000101
  6. ACCUPRIL [Concomitant]
     Dates: start: 20000101
  7. PRILOSEC [Concomitant]
  8. TOPADOL [Concomitant]
     Dates: start: 19970101
  9. ACETYLSALICYLIC ACID [Concomitant]
     Dates: start: 19950101

REACTIONS (2)
  - DEPRESSED LEVEL OF CONSCIOUSNESS [None]
  - SOMNOLENCE [None]
